FAERS Safety Report 9014675 (Version 4)
Quarter: 2014Q1

REPORT INFORMATION
  Report Type: Spontaneous
  Country: US (occurrence: US)
  Receive Date: 20130115
  Receipt Date: 20140306
  Transmission Date: 20141002
  Serious: Yes (Hospitalization)
  Sender: FDA-Public Use
  Company Number: US-009507513-1301USA005240

PATIENT
  Sex: Female
  Weight: 53.52 kg

DRUGS (1)
  1. NUVARING [Suspect]
     Indication: CONTRACEPTION
     Dosage: 1 DF, QM
     Route: 067
     Dates: start: 20080720, end: 201011

REACTIONS (25)
  - Thromboembolectomy [Unknown]
  - Peripheral artery thrombosis [Unknown]
  - Venous thrombosis limb [Unknown]
  - Subclavian artery stenosis [Unknown]
  - Deep vein thrombosis [Unknown]
  - Menstruation irregular [Unknown]
  - Urinary tract infection [Unknown]
  - Hypotension [Unknown]
  - Migraine [Unknown]
  - Carpal tunnel syndrome [Unknown]
  - Carpal tunnel decompression [Unknown]
  - Herpes zoster [Unknown]
  - Fungal infection [Unknown]
  - Smear cervix abnormal [Unknown]
  - Skin papilloma [Unknown]
  - Migraine [Unknown]
  - Urinary tract infection [Unknown]
  - Nephrolithiasis [Unknown]
  - Ear tube insertion [Unknown]
  - Gastrooesophageal reflux disease [Unknown]
  - Kidney infection [Unknown]
  - Herpes zoster [Unknown]
  - Wisdom teeth removal [Unknown]
  - Rheumatic disorder [Unknown]
  - Seasonal allergy [Unknown]
